FAERS Safety Report 14062431 (Version 1)
Quarter: 2017Q4

REPORT INFORMATION
  Report Type: Not Available
  Country: IT (occurrence: IT)
  Receive Date: 20171009
  Receipt Date: 20171009
  Transmission Date: 20180321
  Serious: Yes (Hospitalization)
  Sender: FDA-Public Use
  Company Number: IT-BIOVITRUM-2017IT0904

PATIENT
  Age: 22 Year
  Sex: Female

DRUGS (2)
  1. KINERET [Suspect]
     Active Substance: ANAKINRA
     Dosage: CYCLICAL
     Route: 058
  2. COLCHICINE. [Suspect]
     Active Substance: COLCHICINE
     Indication: PERICARDITIS
     Route: 048

REACTIONS (3)
  - Biliary colic [Unknown]
  - Cholelithiasis [Unknown]
  - Cholangitis [Unknown]

NARRATIVE: CASE EVENT DATE: 20170723
